FAERS Safety Report 10214641 (Version 2)
Quarter: 2014Q2

REPORT INFORMATION
  Report Type: Spontaneous
  Country: SE (occurrence: SE)
  Receive Date: 20140603
  Receipt Date: 20140603
  Transmission Date: 20141212
  Serious: Yes (Hospitalization)
  Sender: FDA-Public Use
  Company Number: SE-ACTAVIS-2014-06190

PATIENT
  Age: 65 Year
  Sex: Female

DRUGS (6)
  1. EPIRUBICIN ACTAVIS [Suspect]
     Indication: BREAST CANCER
     Dosage: 150 MG, UNK
     Route: 042
     Dates: start: 20140218
  2. FLUOROURACIL [Suspect]
     Indication: BREAST CANCER
     Dosage: 1200 MG, UNK
     Route: 042
     Dates: start: 20140218
  3. SENDOXAN [Suspect]
     Indication: BREAST CANCER
     Dosage: 1200 MG, UNK
     Route: 042
     Dates: start: 20140218
  4. NIVESTIM [Concomitant]
     Indication: PRODUCT USED FOR UNKNOWN INDICATION
     Dosage: UNK
     Route: 058
  5. TAXOTERE [Concomitant]
     Indication: PRODUCT USED FOR UNKNOWN INDICATION
     Dosage: UNK
     Route: 065
  6. BETAPRED [Concomitant]
     Indication: PRODUCT USED FOR UNKNOWN INDICATION
     Dosage: 0.5 MG, UNK
     Dates: start: 20140401

REACTIONS (4)
  - Febrile neutropenia [Unknown]
  - Granulocyte count decreased [Recovered/Resolved]
  - White blood cell count decreased [Recovered/Resolved]
  - Malaise [Recovered/Resolved]
